FAERS Safety Report 4708580-3 (Version None)
Quarter: 2005Q3

REPORT INFORMATION
  Report Type: 
  Country: None (occurrence: None)
  Receive Date: 20050705
  Receipt Date: 20050627
  Transmission Date: 20060218
  Serious: Yes (Hospitalization, Other)
  Sender: FDA-Public Use
  Company Number: HQWYE469515JUN05

PATIENT
  Age: 69 Year
  Sex: Male

DRUGS (1)
  1. AVLOCARDYL [Suspect]
     Indication: ESSENTIAL HYPERTENSION
     Dosage: 40 MG 1X PER 1 DAY
     Route: 048
     Dates: start: 20041010, end: 20050325

REACTIONS (5)
  - HYPOXIA [None]
  - INTERSTITIAL LUNG DISEASE [None]
  - PYREXIA [None]
  - TACHYCARDIA [None]
  - THERAPY NON-RESPONDER [None]
